FAERS Safety Report 10017062 (Version 1)
Quarter: 2014Q1

REPORT INFORMATION
  Report Type: Spontaneous
  Country: US (occurrence: US)
  Receive Date: 20140318
  Receipt Date: 20140318
  Transmission Date: 20141002
  Serious: No
  Sender: FDA-Public Use
  Company Number: US-BIOGENIDEC-2014BI022978

PATIENT
  Age: 66 Year
  Sex: Female

DRUGS (11)
  1. TECFIDERA [Suspect]
     Indication: MULTIPLE SCLEROSIS
     Route: 048
  2. ASPIRIN [Concomitant]
  3. BACLOFEN [Concomitant]
  4. BALANCED B COMPLEX CR [Concomitant]
  5. CITRACAL PLUS [Concomitant]
  6. CLARITIN [Concomitant]
  7. FISH OIL [Concomitant]
  8. FLUORIDE [Concomitant]
  9. PEPCID [Concomitant]
  10. SINGULAIR [Concomitant]
  11. VESICARE [Concomitant]

REACTIONS (3)
  - Muscular weakness [Not Recovered/Not Resolved]
  - Pain in extremity [Not Recovered/Not Resolved]
  - Muscle contractions involuntary [Not Recovered/Not Resolved]
